FAERS Safety Report 12336821 (Version 2)
Quarter: 2016Q2

REPORT INFORMATION
  Report Type: Spontaneous
  Country: US (occurrence: US)
  Receive Date: 20160505
  Receipt Date: 20160609
  Transmission Date: 20160815
  Serious: Yes (Other)
  Sender: FDA-Public Use
  Company Number: US-AUROBINDO-AUR-APU-2016-05449

PATIENT
  Sex: Female

DRUGS (1)
  1. CEPHALEXIN USP [Suspect]
     Active Substance: CEPHALEXIN ANHYDROUS
     Indication: ANTIBIOTIC PROPHYLAXIS
     Dosage: 500 MG, FOUR TIMES/DAY
     Route: 065

REACTIONS (4)
  - Metal poisoning [Unknown]
  - Rash [Unknown]
  - Oral disorder [Unknown]
  - Wrong technique in product usage process [Unknown]
